FAERS Safety Report 24218476 (Version 5)
Quarter: 2024Q4

REPORT INFORMATION
  Report Type: Report from Study
  Country: AU (occurrence: AU)
  Receive Date: 20240816
  Receipt Date: 20241016
  Transmission Date: 20250114
  Serious: Yes (Hospitalization)
  Sender: ABBVIE
  Company Number: AU-ABBVIE-5879359

PATIENT
  Age: 44 Year
  Sex: Male

DRUGS (7)
  1. HUMIRA [Suspect]
     Active Substance: ADALIMUMAB
     Indication: Colitis ulcerative
     Route: 058
     Dates: start: 20171204, end: 201810
  2. HUMIRA [Suspect]
     Active Substance: ADALIMUMAB
     Route: 058
     Dates: start: 201810, end: 20210319
  3. HUMIRA [Suspect]
     Active Substance: ADALIMUMAB
     Route: 058
     Dates: start: 20210320
  4. URSODIOL [Concomitant]
     Active Substance: URSODIOL
     Indication: Cholangitis sclerosing
     Route: 048
     Dates: start: 201305
  5. SULFASALAZINE [Concomitant]
     Active Substance: SULFASALAZINE
     Indication: Colitis ulcerative
     Route: 048
     Dates: start: 20201224
  6. CHOLECALCIFEROL [Concomitant]
     Active Substance: CHOLECALCIFEROL
     Indication: Osteopenia
     Dosage: DOSE UNIT: 1 TABLET
     Route: 048
     Dates: start: 20190222
  7. PREDNISOLONE [Concomitant]
     Active Substance: PREDNISOLONE
     Indication: Pyoderma
     Dosage: DOSE UNIT: TAPERING MG
     Route: 048
     Dates: start: 20230904

REACTIONS (1)
  - Cholangitis sclerosing [Recovered/Resolved]

NARRATIVE: CASE EVENT DATE: 20231026
